FAERS Safety Report 8563488-0 (Version None)
Quarter: 2012Q3

REPORT INFORMATION
  Report Type: 
  Country: None (occurrence: None)
  Receive Date: 20120802
  Receipt Date: 20120723
  Transmission Date: 20120928
  Serious: No
  Sender: FDA-Public Use
  Company Number: US-009507513-1207USA009956

PATIENT

DRUGS (8)
  1. ATORVASTATIN CALCIUM [Suspect]
  2. SINGULAIR [Concomitant]
  3. ASPIRIN [Concomitant]
  4. LIPITOR [Suspect]
     Dosage: 10 MG, QD
     Route: 048
  5. COMBIVENT [Concomitant]
  6. ZOCOR [Suspect]
     Dosage: 30 MG, QD
     Route: 048
  7. PHENYTOIN [Concomitant]
  8. OMEGA-3 MARINE TRIGLYCERIDES [Concomitant]

REACTIONS (1)
  - BLOOD CHOLESTEROL INCREASED [None]
